FAERS Safety Report 6470469-X (Version None)
Quarter: 2009Q4

REPORT INFORMATION
  Report Type: 
  Country: None (occurrence: None)
  Receive Date: 20091202
  Receipt Date: 20091202
  Transmission Date: 20100525
  Serious: Yes (Other)
  Sender: FDA-Public Use
  Company Number: None

PATIENT
  Age: 54 Year
  Sex: Female
  Weight: 92.7 kg

DRUGS (1)
  1. CELEBREX [Suspect]
     Indication: OSTEOARTHRITIS
     Dosage: 1/DAY ORAL
     Route: 048
     Dates: start: 20081001, end: 20091001

REACTIONS (4)
  - CHEST PAIN [None]
  - DYSPNOEA [None]
  - LEFT VENTRICULAR FAILURE [None]
  - PULMONARY HYPERTENSION [None]
